FAERS Safety Report 5342494-3 (Version None)
Quarter: 2007Q2

REPORT INFORMATION
  Report Type: 
  Country: None (occurrence: None)
  Receive Date: 20070601
  Receipt Date: 20070522
  Transmission Date: 20071010
  Serious: Yes (Hospitalization, Other)
  Sender: FDA-Public Use
  Company Number: FR-SHR-FR-2007-018921

PATIENT
  Age: 62 Year
  Sex: Male

DRUGS (4)
  1. FLUDARA [Suspect]
     Indication: AUTOLOGOUS BONE MARROW TRANSPLANTATION THERAPY
     Dates: start: 20020101, end: 20020101
  2. CYCLOPHOSPHAMIDE [Suspect]
     Indication: AUTOLOGOUS BONE MARROW TRANSPLANTATION THERAPY
     Dates: start: 20020101, end: 20020101
  3. CYCLOPHOSPHAMIDE [Suspect]
     Dates: start: 20010101, end: 20010101
  4. ETOPOSIDE [Suspect]
     Dates: start: 20010101, end: 20010101

REACTIONS (4)
  - IMMUNOSUPPRESSION [None]
  - MYELODYSPLASTIC SYNDROME [None]
  - PNEUMONIA BACTERIAL [None]
  - SINUSITIS [None]
